FAERS Safety Report 7240476-8 (Version None)
Quarter: 2011Q1

REPORT INFORMATION
  Report Type: 
  Country: None (occurrence: None)
  Receive Date: 20110124
  Receipt Date: 20110119
  Transmission Date: 20110831
  Serious: No
  Sender: FDA-Public Use
  Company Number: US-PFIZER INC-2011014023

PATIENT
  Age: 62 Year
  Sex: Female

DRUGS (2)
  1. FENOFIBRIC ACID [Suspect]
     Dosage: 145 MG, UNK
  2. LIPITOR [Suspect]
     Dosage: 40 MG, UNK

REACTIONS (2)
  - MUSCLE SPASMS [None]
  - MUSCULOSKELETAL STIFFNESS [None]
